FAERS Safety Report 5285537-8 (Version None)
Quarter: 2007Q1

REPORT INFORMATION
  Report Type: 
  Country: None (occurrence: None)
  Receive Date: 20061227
  Receipt Date: 20061004
  Transmission Date: 20070707
  Serious: Yes (Disabling)
  Sender: FDA-Public Use
  Company Number: A03200606113

PATIENT
  Sex: Female

DRUGS (1)
  1. AMBIEN - ZOLPIDEM TARTRATE - TABLET 12.5 [Suspect]
     Dosage: 12.5 MG HS - ORAL
     Route: 048

REACTIONS (1)
  - ILL-DEFINED DISORDER [None]
